FAERS Safety Report 8909927 (Version 5)
Quarter: 2013Q1

REPORT INFORMATION
  Report Type: Report from Study
  Country: JP (occurrence: JP)
  Receive Date: 20121114
  Receipt Date: 20130208
  Transmission Date: 20140127
  Serious: Yes (Other)
  Sender: FDA-Public Use
  Company Number: JP-OTSUKA-JP-2012-16797

PATIENT
  Age: 86 Year
  Sex: Male
  Weight: 54 kg

DRUGS (6)
  1. SAMSCA [Suspect]
     Indication: FLUID RETENTION
     Dosage: 7.5 MG MILLIGRAM(S), QAM
     Route: 048
     Dates: start: 20120919, end: 20121002
  2. DIART [Suspect]
     Indication: CARDIAC FAILURE
     Dosage: 60 MG MILLIGRAM(S), DAILY DOSE
     Route: 048
  3. SPIRONOLACTONE [Suspect]
     Indication: CARDIAC FAILURE
     Dosage: 25 MG MILLIGRAM(S), DAILY DOSE
     Route: 048
  4. OLMETEC [Concomitant]
     Indication: CARDIAC FAILURE
     Dosage: 20 MG MILLIGRAM(S), DAILY DOSE
     Route: 048
  5. PLETAAL [Concomitant]
     Dosage: 200 MG MILLIGRAM(S), DAILY DOSE
     Route: 048
  6. WARFARIN [Concomitant]
     Dosage: 1.5 MG MILLIGRAM(S), DAILY DOSE
     Route: 048

REACTIONS (2)
  - Renal impairment [Recovered/Resolved]
  - Blood potassium increased [Unknown]
